FAERS Safety Report 25486625 (Version 2)
Quarter: 2025Q3

REPORT INFORMATION
  Report Type: Spontaneous
  Country: EU (occurrence: EU)
  Receive Date: 20250627
  Receipt Date: 20250919
  Transmission Date: 20251021
  Serious: Yes (Other)
  Sender: AUROBINDO
  Company Number: EU-TEVA-VS-3340049

PATIENT
  Age: 2 Year
  Sex: Male

DRUGS (1)
  1. AMOXICILLIN [Suspect]
     Active Substance: AMOXICILLIN
     Indication: Otitis media
     Route: 065

REACTIONS (12)
  - Upper respiratory tract infection [Recovered/Resolved]
  - Interstitial granulomatous dermatitis [Recovered/Resolved]
  - Leukocytosis [Recovered/Resolved]
  - Mechanical urticaria [Recovered/Resolved]
  - Neutrophilia [Recovered/Resolved]
  - Oedema peripheral [Recovered/Resolved]
  - Pruritus [Recovered/Resolved]
  - Pyrexia [Recovered/Resolved]
  - Skin lesion [Recovered/Resolved]
  - Skin test positive [Recovered/Resolved]
  - Superficial inflammatory dermatosis [Recovered/Resolved]
  - Urticaria [Recovered/Resolved]
